FAERS Safety Report 4879594-8 (Version None)
Quarter: 2006Q1

REPORT INFORMATION
  Report Type: 
  Country: None (occurrence: None)
  Receive Date: 20060113
  Receipt Date: 20050503
  Transmission Date: 20060701
  Serious: No
  Sender: FDA-Public Use
  Company Number: US-BRISTOL-MYERS SQUIBB COMPANY-12955506

PATIENT
  Age: 63 Year
  Sex: Female
  Weight: 81 kg

DRUGS (6)
  1. PLATINOL-AQ [Suspect]
     Indication: TONGUE NEOPLASM MALIGNANT STAGE UNSPECIFIED
     Route: 042
     Dates: start: 20050117, end: 20050211
  2. FLUOROURACIL [Concomitant]
     Route: 042
     Dates: start: 20050117, end: 20050221
  3. DEXAMETHASONE TAB [Concomitant]
     Route: 042
     Dates: start: 20050121, end: 20050211
  4. KYTRIL [Concomitant]
     Route: 042
     Dates: start: 20050121, end: 20050211
  5. ATIVAN [Concomitant]
     Route: 042
     Dates: start: 20050121, end: 20050211
  6. AMIFOSTINE [Concomitant]
     Route: 040
     Dates: start: 20050207, end: 20050211

REACTIONS (1)
  - DRUG TOXICITY [None]
